FAERS Safety Report 6982190-X (Version None)
Quarter: 2010Q3

REPORT INFORMATION
  Report Type: 
  Country: None (occurrence: None)
  Receive Date: 20100914
  Receipt Date: 20091110
  Transmission Date: 20110219
  Serious: No
  Sender: FDA-Public Use
  Company Number: US-PFIZER INC-2009297415

PATIENT
  Sex: Female
  Weight: 63.5 kg

DRUGS (5)
  1. LYRICA [Suspect]
     Indication: PARAESTHESIA
     Dosage: 50 MG, 1X/DAY
     Route: 048
     Dates: start: 20090701, end: 20090101
  2. LYRICA [Suspect]
     Indication: NEURALGIA
  3. RELAFEN [Concomitant]
     Dosage: UNK
  4. SIMVASTATIN [Concomitant]
     Dosage: UNK
  5. PREMARIN [Concomitant]
     Dosage: UNK

REACTIONS (2)
  - DRUG INEFFECTIVE [None]
  - TREMOR [None]
